FAERS Safety Report 9086756 (Version 1)
Quarter: 2013Q1

REPORT INFORMATION
  Report Type: Report from Study
  Country: US (occurrence: US)
  Receive Date: 20130131
  Receipt Date: 20130131
  Transmission Date: 20140127
  Serious: No
  Sender: FDA-Public Use
  Company Number: US-ABBOTT-12P-163-0991131-00

PATIENT
  Sex: Female

DRUGS (7)
  1. HUMIRA [Suspect]
     Indication: RHEUMATOID ARTHRITIS
     Dates: start: 201209
  2. LIALDA [Concomitant]
     Indication: RHEUMATOID ARTHRITIS
  3. LIALDA [Concomitant]
     Indication: CROHN^S DISEASE
  4. 6MP (NON-ABBOTT) [Concomitant]
     Indication: RHEUMATOID ARTHRITIS
  5. 6MP (NON-ABBOTT) [Concomitant]
     Indication: CROHN^S DISEASE
  6. PRILOSEC (NON-ABBOTT) [Concomitant]
     Indication: GASTROOESOPHAGEAL REFLUX DISEASE
  7. TYLENOL (NON-ABBOTT) [Concomitant]
     Indication: PAIN

REACTIONS (4)
  - Influenza like illness [Recovered/Resolved]
  - Pyrexia [Recovered/Resolved]
  - Chills [Recovered/Resolved]
  - Pain [Recovered/Resolved]
